FAERS Safety Report 7598069-9 (Version None)
Quarter: 2011Q3

REPORT INFORMATION
  Report Type: 
  Country: None (occurrence: None)
  Receive Date: 20110708
  Receipt Date: 20110628
  Transmission Date: 20111222
  Serious: Yes (Hospitalization, Other)
  Sender: FDA-Public Use
  Company Number: PHHY2011AU58322

PATIENT
  Sex: Male

DRUGS (1)
  1. PSEUDOEPHEDRINE HCL [Suspect]
     Dosage: 600 MG- 1500 MG, EPISODICALLY
     Route: 048

REACTIONS (19)
  - DYSARTHRIA [None]
  - MUSCULAR WEAKNESS [None]
  - VENTRICULAR HYPERTROPHY [None]
  - HYPERGLYCAEMIA [None]
  - DIZZINESS [None]
  - HYPERTENSION [None]
  - HEMIPARESIS [None]
  - BASAL GANGLIA HAEMORRHAGE [None]
  - CIRCULATORY COLLAPSE [None]
  - DRUG DEPENDENCE [None]
  - DELIRIUM [None]
  - RENIN INCREASED [None]
  - PROTEINURIA [None]
  - RENAL IMPAIRMENT [None]
  - SINUS RHYTHM [None]
  - HAEMORRHAGIC STROKE [None]
  - HYPERTENSIVE NEPHROPATHY [None]
  - VOMITING [None]
  - ANEURYSM [None]
